FAERS Safety Report 13581761 (Version 2)
Quarter: 2017Q2

REPORT INFORMATION
  Report Type: Report from Study
  Country: IE (occurrence: IE)
  Receive Date: 20170525
  Receipt Date: 20170621
  Transmission Date: 20170830
  Serious: Yes (Hospitalization, Other)
  Sender: FDA-Public Use
  Company Number: IE-009507513-1703IRL008376

PATIENT
  Age: 80 Year
  Sex: Male

DRUGS (2)
  1. PEMBROLIZUMAB. [Suspect]
     Active Substance: PEMBROLIZUMAB
     Dosage: UNK, Q3W
     Route: 042
     Dates: start: 2017
  2. PEMBROLIZUMAB. [Suspect]
     Active Substance: PEMBROLIZUMAB
     Indication: MALIGNANT MELANOMA
     Dosage: UNK, Q3W
     Route: 042
     Dates: start: 20170301, end: 2017

REACTIONS (12)
  - Proctalgia [Recovering/Resolving]
  - Pulmonary pain [Unknown]
  - Mouth ulceration [Recovering/Resolving]
  - Renal disorder [Unknown]
  - Dyspnoea [Not Recovered/Not Resolved]
  - Lower respiratory tract infection [Recovering/Resolving]
  - Constipation [Unknown]
  - Fatigue [Unknown]
  - Hepatitis [Recovering/Resolving]
  - Dizziness [Not Recovered/Not Resolved]
  - Pruritus [Unknown]
  - Testicular pain [Recovering/Resolving]

NARRATIVE: CASE EVENT DATE: 2017
